FAERS Safety Report 22290787 (Version 2)
Quarter: 2023Q2

REPORT INFORMATION
  Report Type: Report from Study
  Country: AU (occurrence: AU)
  Receive Date: 20230506
  Receipt Date: 20230510
  Transmission Date: 20230721
  Serious: Yes (Other)
  Sender: FDA-Public Use
  Company Number: AU-ABBVIE-4754251

PATIENT
  Sex: Male

DRUGS (2)
  1. CARBIDOPA\LEVODOPA [Suspect]
     Active Substance: CARBIDOPA\LEVODOPA
     Indication: Parkinson^s disease
     Dosage: THE MORNING DOSE WAS REPORTED TO BE 9 MILLILITERS (MLS); THE CONTINUOUS DOSE WAS REPORTED TO BE 4...
     Route: 050
     Dates: start: 20190514
  2. CARBIDOPA\LEVODOPA [Suspect]
     Active Substance: CARBIDOPA\LEVODOPA

REACTIONS (5)
  - Neuropathy peripheral [Unknown]
  - Device leakage [Unknown]
  - Gait inability [Unknown]
  - Device occlusion [Unknown]
  - Stoma site erythema [Unknown]

NARRATIVE: CASE EVENT DATE: 20230101
